FAERS Safety Report 6986570-8 (Version None)
Quarter: 2010Q3

REPORT INFORMATION
  Report Type: 
  Country: None (occurrence: None)
  Receive Date: 20100915
  Receipt Date: 20090714
  Transmission Date: 20110219
  Serious: No
  Sender: FDA-Public Use
  Company Number: US-WYE-H10178509

PATIENT
  Age: 44 Year
  Sex: Male

DRUGS (6)
  1. PRISTIQ [Suspect]
     Indication: MAJOR DEPRESSION
     Route: 048
     Dates: start: 20090309
  2. CIALIS [Concomitant]
  3. ZESTRIL [Concomitant]
  4. WESTCORT [Concomitant]
  5. NICOTINIC ACID [Concomitant]
  6. ZOCOR [Concomitant]

REACTIONS (1)
  - GYNAECOMASTIA [None]
